FAERS Safety Report 8350350-1 (Version None)
Quarter: 2012Q2

REPORT INFORMATION
  Report Type: 
  Country: None (occurrence: None)
  Receive Date: 20120510
  Receipt Date: 20120502
  Transmission Date: 20120825
  Serious: Yes (Hospitalization)
  Sender: FDA-Public Use
  Company Number: US-BAYER-2012-044280

PATIENT
  Age: 45 Year
  Sex: Female

DRUGS (9)
  1. VICODIN [Concomitant]
     Dosage: 500/5MG
     Route: 048
     Dates: start: 20101108
  2. DARVOCET-N 50 [Concomitant]
     Dosage: 650/100MG
     Route: 048
     Dates: start: 20101108
  3. PHENERGAN [Concomitant]
     Indication: NAUSEA
     Dosage: 25 MG, UNK
     Route: 048
     Dates: start: 20101108
  4. DROSPIRENONE AND ETHINYL ESTRADIOL [Suspect]
  5. PHENERGAN [Concomitant]
     Dosage: 25 MG, UNK
     Route: 054
     Dates: start: 20101108
  6. YASMIN [Suspect]
  7. METODOPRAMIDE [Concomitant]
     Dosage: 10 MG, UNK
     Route: 048
     Dates: start: 20101108
  8. YAZ [Suspect]
  9. MAGNESIUM CITRATE [Concomitant]
     Dosage: 1300 ML, UNK
     Route: 048
     Dates: start: 20101108

REACTIONS (1)
  - MESENTERIC VEIN THROMBOSIS [None]
